FAERS Safety Report 7999347-1 (Version None)
Quarter: 2011Q4

REPORT INFORMATION
  Report Type: 
  Country: None (occurrence: None)
  Receive Date: 20111221
  Receipt Date: 20111212
  Transmission Date: 20120403
  Serious: Yes (Hospitalization)
  Sender: FDA-Public Use
  Company Number: BR-MEDIMMUNE-MEDI-0014197

PATIENT
  Sex: Female
  Weight: 6.2 kg

DRUGS (3)
  1. SYNAGIS [Suspect]
     Route: 030
     Dates: start: 20110708, end: 20110708
  2. FERROUS SULFATE TAB [Concomitant]
     Route: 048
     Dates: start: 20110601
  3. PROTOVIT [Concomitant]
     Indication: VITAMIN SUPPLEMENTATION
     Route: 048

REACTIONS (2)
  - BRONCHIOLITIS [None]
  - FATIGUE [None]
